FAERS Safety Report 8328036-9 (Version None)
Quarter: 2012Q2

REPORT INFORMATION
  Report Type: 
  Country: None (occurrence: None)
  Receive Date: 20120502
  Receipt Date: 20120426
  Transmission Date: 20120825
  Serious: Yes (Death, Hospitalization)
  Sender: FDA-Public Use
  Company Number: DE-AMGEN-DEUCT2012024010

PATIENT
  Age: 56 Year
  Sex: Male

DRUGS (10)
  1. IRINOTECAN HCL [Concomitant]
     Indication: ANAEMIA
     Dosage: UNK UNK, QWK
     Route: 042
     Dates: start: 20120131, end: 20120306
  2. ARIXTRA [Concomitant]
     Dosage: UNK
     Dates: start: 20120327
  3. FLUOROURACIL [Concomitant]
     Indication: ANAEMIA
     Dosage: UNK UNK, QWK
     Route: 042
     Dates: start: 20120131, end: 20120307
  4. FERINJECT [Concomitant]
     Dosage: 1 UNK, 3 TIMES/WK
     Dates: start: 20120327
  5. DARBEPOETIN ALFA [Suspect]
     Indication: ANAEMIA
     Dosage: 500 MUG, UNK
     Route: 042
     Dates: start: 20120403, end: 20120403
  6. NOVAMINOSULFON [Concomitant]
     Dosage: 500 MG/ML, PRN
     Dates: start: 20110519
  7. MORPHINE [Concomitant]
     Dosage: UNK UNK, TID
  8. ERBITUX [Concomitant]
     Indication: ANAEMIA
     Dosage: UNK UNK, QWK
     Route: 042
     Dates: start: 20120131, end: 20120306
  9. RIBOFOLIN [Concomitant]
     Indication: ANAEMIA
     Dosage: UNK
     Route: 042
     Dates: start: 20120131, end: 20120306
  10. NOVOBAN [Concomitant]
     Dosage: 5 MG, UNK
     Dates: start: 20110315

REACTIONS (1)
  - PULMONARY EMBOLISM [None]
